FAERS Safety Report 10176524 (Version 1)
Quarter: 2014Q2

REPORT INFORMATION
  Report Type: Spontaneous
  Country: US (occurrence: None)
  Receive Date: 20140515
  Receipt Date: 20140515
  Transmission Date: 20141212
  Serious: Yes (Life-Threatening, Hospitalization, Disabling)
  Sender: FDA-Public Use
  Company Number: None

PATIENT
  Age: 50 Year
  Sex: Male
  Weight: 86.18 kg

DRUGS (1)
  1. TESTOSTEROINE [Suspect]
     Indication: BLOOD TESTOSTERONE DECREASED
     Dosage: BI WEEKLY/ MONTHLY ?INTO THE MUSCLE
     Dates: start: 2009, end: 2012

REACTIONS (2)
  - Myocardial infarction [None]
  - Intracardiac thrombus [None]
